FAERS Safety Report 25646537 (Version 2)
Quarter: 2025Q3

REPORT INFORMATION
  Report Type: Report from Study
  Country: US (occurrence: US)
  Receive Date: 20250805
  Receipt Date: 20250908
  Transmission Date: 20251020
  Serious: No
  Sender: MALLINCKRODT
  Company Number: US-MALLINCKRODT-MNK202504768

PATIENT
  Age: 7 Month
  Sex: Male
  Weight: 10 kg

DRUGS (1)
  1. CORTICOTROPIN [Suspect]
     Active Substance: CORTICOTROPIN
     Indication: Infantile spasms
     Route: 030
     Dates: start: 20250801

REACTIONS (2)
  - Screaming [Unknown]
  - Underdose [Unknown]

NARRATIVE: CASE EVENT DATE: 20250801
